FAERS Safety Report 5904602-2 (Version None)
Quarter: 2008Q3

REPORT INFORMATION
  Report Type: 
  Country: None (occurrence: None)
  Receive Date: 20080930
  Receipt Date: 20080930
  Transmission Date: 20090109
  Serious: Yes (Hospitalization)
  Sender: FDA-Public Use
  Company Number: None

PATIENT
  Age: 53 Year
  Sex: Male
  Weight: 95.3 kg

DRUGS (2)
  1. INSULIN [Suspect]
     Indication: DIABETES MELLITUS
     Dosage: 10 UNITS TID SQ
     Route: 058
     Dates: start: 20050826
  2. INSULIN [Suspect]
     Indication: DIABETES MELLITUS
     Dosage: 47 UNITS AM SQ
     Route: 058
     Dates: start: 20040430

REACTIONS (2)
  - HYPOGLYCAEMIA [None]
  - SYNCOPE [None]
